FAERS Safety Report 6156268-7 (Version None)
Quarter: 2009Q2

REPORT INFORMATION
  Report Type: 
  Country: None (occurrence: None)
  Receive Date: 20090413
  Receipt Date: 20090413
  Transmission Date: 20091009
  Serious: No
  Sender: FDA-Public Use
  Company Number: None

PATIENT
  Age: 24 Year
  Sex: Female
  Weight: 63.5036 kg

DRUGS (1)
  1. YAZ [Suspect]
     Dosage: 1 PILL DAILY
     Dates: start: 20090216, end: 20090411

REACTIONS (2)
  - DIARRHOEA [None]
  - VOMITING [None]
